FAERS Safety Report 5028010-4 (Version None)
Quarter: 2006Q2

REPORT INFORMATION
  Report Type: 
  Country: None (occurrence: None)
  Receive Date: 20060612
  Receipt Date: 20060530
  Transmission Date: 20061013
  Serious: Yes (Other)
  Sender: FDA-Public Use
  Company Number: CIP06001255

PATIENT
  Age: 60 Year
  Sex: Female

DRUGS (2)
  1. ASACOL [Suspect]
     Indication: COLITIS ULCERATIVE
     Dosage: 6000 MG DAILY, ORAL
     Route: 048
  2. PREDNISONE TAB [Suspect]
     Indication: COLITIS ULCERATIVE
     Dosage: 60 MG DAILY, UNKNOWN
     Route: 065

REACTIONS (2)
  - CARCINOID TUMOUR OF THE APPENDIX [None]
  - DRUG INEFFECTIVE [None]
